FAERS Safety Report 5660916-5 (Version None)
Quarter: 2008Q1

REPORT INFORMATION
  Report Type: 
  Country: None (occurrence: None)
  Receive Date: 20080311
  Receipt Date: 20080304
  Transmission Date: 20080703
  Serious: Yes (Other)
  Sender: FDA-Public Use
  Company Number: JP-PFIZER INC-2008020078

PATIENT
  Age: 57 Year
  Sex: Male

DRUGS (2)
  1. ATARAX [Suspect]
     Route: 048
     Dates: start: 20071120, end: 20080220
  2. MINOMYCIN [Concomitant]
     Dosage: DAILY DOSE:100MG
     Route: 048
     Dates: start: 20071120, end: 20080220

REACTIONS (1)
  - SYNCOPE [None]
